FAERS Safety Report 16427411 (Version 2)
Quarter: 2021Q1

REPORT INFORMATION
  Report Type: Spontaneous
  Country: US (occurrence: US)
  Receive Date: 20190613
  Receipt Date: 20210205
  Transmission Date: 20210419
  Serious: Yes (Other)
  Sender: FDA-Public Use
  Company Number: US-INTERCEPT-PMOCA2017001248

PATIENT
  Age: 80 Year
  Sex: Female

DRUGS (3)
  1. URSODIOL. [Concomitant]
     Active Substance: URSODIOL
     Dosage: UNK
     Dates: start: 2003
  2. OCALIVA [Suspect]
     Active Substance: OBETICHOLIC ACID
     Dosage: 10 MILLIGRAM, QD
     Route: 048
     Dates: start: 20180402
  3. OCALIVA [Suspect]
     Active Substance: OBETICHOLIC ACID
     Indication: PRIMARY BILIARY CHOLANGITIS
     Dosage: 10 MILLIGRAM, QD
     Route: 048
     Dates: start: 20110101

REACTIONS (11)
  - Hepatomegaly [Unknown]
  - Fatigue [Unknown]
  - Fall [Recovered/Resolved]
  - Blood alkaline phosphatase increased [Unknown]
  - Cervical spinal stenosis [Unknown]
  - Abdominal distension [Unknown]
  - Limb discomfort [Unknown]
  - Spinal fracture [Unknown]
  - Sjogren^s syndrome [Unknown]
  - Weight increased [Unknown]
  - Pain [Unknown]

NARRATIVE: CASE EVENT DATE: 201703
